FAERS Safety Report 4934768-2 (Version None)
Quarter: 2006Q1

REPORT INFORMATION
  Report Type: 
  Country: None (occurrence: None)
  Receive Date: 20060307
  Receipt Date: 20050930
  Transmission Date: 20060701
  Serious: Yes (Hospitalization, Disabling)
  Sender: FDA-Public Use
  Company Number: US-MERCK-0510USA00966

PATIENT
  Age: 57 Year
  Sex: Female
  Weight: 80 kg

DRUGS (1)
  1. VIOXX [Suspect]
     Indication: MONARTHRITIS
     Route: 048
     Dates: start: 20021111, end: 20030801

REACTIONS (1)
  - CEREBROVASCULAR ACCIDENT [None]
